FAERS Safety Report 21576923 (Version 5)
Quarter: 2022Q4

REPORT INFORMATION
  Report Type: Report from Study
  Country: US (occurrence: US)
  Receive Date: 20221110
  Receipt Date: 20221216
  Transmission Date: 20230113
  Serious: No
  Sender: FDA-Public Use
  Company Number: US-002147023-NVSC2022US253586

PATIENT
  Age: 76 Year
  Sex: Male

DRUGS (2)
  1. XIIDRA [Suspect]
     Active Substance: LIFITEGRAST
     Indication: Dry eye
     Dosage: 5 %, BID (LAST DOSE -20 OCT 2022)
     Route: 047
     Dates: start: 20221019
  2. XIIDRA [Suspect]
     Active Substance: LIFITEGRAST
     Dosage: 50 MG
     Route: 065

REACTIONS (4)
  - Eye irritation [Unknown]
  - Vision blurred [Not Recovered/Not Resolved]
  - Eye pain [Unknown]
  - Lacrimation increased [Unknown]

NARRATIVE: CASE EVENT DATE: 20221020
